FAERS Safety Report 5676247-3 (Version None)
Quarter: 2008Q1

REPORT INFORMATION
  Report Type: 
  Country: None (occurrence: None)
  Receive Date: 20080321
  Receipt Date: 20080311
  Transmission Date: 20080703
  Serious: Yes (Other)
  Sender: FDA-Public Use
  Company Number: US-PFIZER INC-2008023093

PATIENT
  Sex: Female

DRUGS (2)
  1. LYRICA [Suspect]
     Indication: FIBROMYALGIA
  2. PREDNISONE TAB [Concomitant]

REACTIONS (2)
  - MUSCULAR WEAKNESS [None]
  - PAIN [None]
